FAERS Safety Report 12380704 (Version 1)
Quarter: 2016Q2

REPORT INFORMATION
  Report Type: Spontaneous
  Country: US (occurrence: None)
  Receive Date: 20160517
  Receipt Date: 20160517
  Transmission Date: 20160815
  Serious: No
  Sender: FDA-Public Use
  Company Number: None

PATIENT
  Age: 52 Year
  Sex: Female
  Weight: 113.4 kg

DRUGS (1)
  1. LEVOFLOXACIN, 500MG JOHNSON + JOHNSON [Suspect]
     Active Substance: LEVOFLOXACIN
     Indication: RESPIRATORY DISORDER
     Route: 048
     Dates: start: 20160506, end: 20160510

REACTIONS (2)
  - Retinal detachment [None]
  - Retinal tear [None]

NARRATIVE: CASE EVENT DATE: 20160508
